FAERS Safety Report 9714273 (Version 2)
Quarter: 2013Q4

REPORT INFORMATION
  Report Type: Spontaneous
  Country: US (occurrence: US)
  Receive Date: 20131126
  Receipt Date: 20131126
  Transmission Date: 20140711
  Serious: No
  Sender: FDA-Public Use
  Company Number: US-GILEAD-2008-0019147

PATIENT
  Sex: Male
  Weight: 59.42 kg

DRUGS (9)
  1. LETAIRIS [Suspect]
  2. INSPRA [Concomitant]
  3. COZAAR [Concomitant]
  4. LASIX [Concomitant]
  5. COUMADIN [Concomitant]
  6. COREG CR [Concomitant]
  7. AMIODARONE [Concomitant]
  8. ALLOPURINOL [Concomitant]
  9. PRANDIN [Concomitant]

REACTIONS (2)
  - Tremor [Not Recovered/Not Resolved]
  - Local swelling [Recovered/Resolved]
